FAERS Safety Report 8854411 (Version 1)
Quarter: 2012Q4

REPORT INFORMATION
  Report Type: Report from Study
  Country: AU (occurrence: AU)
  Receive Date: 20121023
  Receipt Date: 20121023
  Transmission Date: 20130627
  Serious: Yes (Other)
  Sender: FDA-Public Use
  Company Number: AU-ROCHE-1147571

PATIENT
  Sex: Male

DRUGS (11)
  1. TOCILIZUMAB [Suspect]
     Indication: RHEUMATOID ARTHRITIS
     Route: 042
     Dates: start: 20120823
  2. TESTOSTERONE [Concomitant]
     Route: 065
  3. PREDNISONE [Concomitant]
     Indication: RHEUMATOID ARTHRITIS
     Dosage: 15 -50 mg
     Route: 048
  4. METHOTREXATE [Concomitant]
     Indication: RHEUMATOID ARTHRITIS
     Route: 048
  5. MOBIC [Concomitant]
     Indication: RHEUMATOID ARTHRITIS
     Route: 048
  6. MOBIC [Concomitant]
     Indication: PAIN
  7. ARAVA [Concomitant]
     Indication: RHEUMATOID ARTHRITIS
     Route: 048
  8. PANADEINE [Concomitant]
     Dosage: 6 to 8 tab
     Route: 065
  9. ENDONE [Concomitant]
     Route: 048
  10. MS CONTIN [Concomitant]
     Route: 048
  11. NORSPAN [Concomitant]
     Route: 062

REACTIONS (2)
  - Fatigue [Recovering/Resolving]
  - Nausea [Unknown]
